FAERS Safety Report 8924188 (Version 1)
Quarter: 2012Q4

REPORT INFORMATION
  Report Type: 
  Country: US (occurrence: US)
  Receive Date: 20121126
  Receipt Date: 20121126
  Transmission Date: 20130627
  Serious: Yes (Other)
  Sender: FDA-Public Use
  Company Number: US-INCYTE CORPORATION-2012IN002364

PATIENT
  Age: 76 None
  Sex: Female

DRUGS (8)
  1. JAKAFI [Suspect]
     Indication: MYELOFIBROSIS
     Dosage: 15 mg, bid
  2. PRILOSEC [Concomitant]
  3. LIPITOR [Concomitant]
  4. ASPIRIN [Concomitant]
     Dosage: 81 mg, UNK
  5. ATENOLOL [Concomitant]
  6. DIGOXIN [Concomitant]
  7. FOLIC ACID [Concomitant]
  8. LISINOPRIL [Concomitant]

REACTIONS (3)
  - Haematochezia [Not Recovered/Not Resolved]
  - Abdominal discomfort [Unknown]
  - Confusional state [Unknown]
